FAERS Safety Report 6013614-2 (Version None)
Quarter: 2008Q4

REPORT INFORMATION
  Report Type: 
  Country: None (occurrence: None)
  Receive Date: 20081218
  Receipt Date: 20081218
  Transmission Date: 20090506
  Serious: No
  Sender: FDA-Public Use
  Company Number: None

PATIENT
  Age: 51 Year
  Sex: Male
  Weight: 67.3 kg

DRUGS (1)
  1. VARENICLINE [Suspect]
     Dosage: 1 MG BID PO
     Route: 048
     Dates: start: 20070912, end: 20071127

REACTIONS (4)
  - DISTURBANCE IN ATTENTION [None]
  - FEELING ABNORMAL [None]
  - INSOMNIA [None]
  - POOR QUALITY SLEEP [None]
